FAERS Safety Report 4450049-8 (Version None)
Quarter: 2004Q3

REPORT INFORMATION
  Report Type: 
  Country: None (occurrence: None)
  Receive Date: 20040915
  Receipt Date: 20040902
  Transmission Date: 20050211
  Serious: Yes (Other)
  Sender: FDA-Public Use
  Company Number: CH-BRISTOL-MYERS SQUIBB COMPANY-12692117

PATIENT
  Sex: Female
  Weight: 92 kg

DRUGS (3)
  1. ABILIFY [Suspect]
     Indication: DEPRESSION
     Route: 048
     Dates: start: 20040630, end: 20040702
  2. ZYPREXA [Suspect]
     Indication: DEPRESSION
     Route: 048
     Dates: end: 20040629
  3. FLUCTINE [Concomitant]
     Indication: DEPRESSION
     Route: 048

REACTIONS (5)
  - DIZZINESS [None]
  - DRUG WITHDRAWAL SYNDROME [None]
  - HYPERHIDROSIS [None]
  - MUSCLE STRAIN [None]
  - NAUSEA [None]
